FAERS Safety Report 9911329 (Version 1)
Quarter: 2014Q1

REPORT INFORMATION
  Report Type: Spontaneous
  Country: PT (occurrence: PT)
  Receive Date: 20140219
  Receipt Date: 20140219
  Transmission Date: 20141002
  Serious: Yes (Other)
  Sender: FDA-Public Use
  Company Number: PT-BAXTER-2014BAX007704

PATIENT
  Age: 10 Year
  Sex: 0

DRUGS (4)
  1. GAMMAGARD LIQUID [Suspect]
     Indication: BRUTON^S AGAMMAGLOBULINAEMIA
     Route: 042
  2. PREDNISOLONE [Concomitant]
     Indication: PRODUCT USED FOR UNKNOWN INDICATION
     Route: 065
  3. PREDNISOLONE [Concomitant]
     Dosage: WITHOUT RELAPSE
     Route: 065
  4. RAMIPRIL [Concomitant]
     Indication: PRODUCT USED FOR UNKNOWN INDICATION

REACTIONS (6)
  - Glomerulonephritis membranoproliferative [Unknown]
  - Pneumonia [Unknown]
  - Haematuria [Unknown]
  - Nephrotic syndrome [Unknown]
  - Hypoalbuminaemia [Unknown]
  - Hypercholesterolaemia [Recovering/Resolving]
